FAERS Safety Report 15288244 (Version 2)
Quarter: 2018Q4

REPORT INFORMATION
  Report Type: Spontaneous
  Country: DE (occurrence: DE)
  Receive Date: 20180817
  Receipt Date: 20181004
  Transmission Date: 20190204
  Serious: Yes (Death, Hospitalization, Other)
  Sender: FDA-Public Use
  Company Number: DE-TEVA-2017-DE-838044

PATIENT
  Age: 38 Year
  Sex: Female
  Weight: 97 kg

DRUGS (18)
  1. METHYLPREDNISOLONE. [Suspect]
     Active Substance: METHYLPREDNISOLONE
     Indication: PROPHYLAXIS
     Dosage: 1 GRAM DAILY; DOSAGE; 1-0-0
     Route: 042
     Dates: start: 20160418, end: 20160420
  2. MONO-EMBOLEX [Suspect]
     Active Substance: CERTOPARIN SODIUM
     Indication: THROMBOSIS PROPHYLAXIS
     Route: 065
     Dates: start: 201604, end: 201604
  3. MAYRA [Concomitant]
     Indication: CONTRACEPTION
     Dosage: 1 DOSAGE FORMS DAILY;
     Route: 048
  4. VESICARE [Concomitant]
     Active Substance: SOLIFENACIN SUCCINATE
     Indication: URGE INCONTINENCE
     Route: 065
  5. PARACETAMOL [Concomitant]
     Active Substance: ACETAMINOPHEN
     Dates: start: 20160418
  6. FAMPYRA [Concomitant]
     Active Substance: DALFAMPRIDINE
     Indication: PRODUCT USED FOR UNKNOWN INDICATION
     Dosage: 2 DOSAGE FORMS DAILY;
     Route: 065
  7. ACICLOVIR [Concomitant]
     Active Substance: ACYCLOVIR
     Indication: PRODUCT USED FOR UNKNOWN INDICATION
     Route: 065
     Dates: start: 20160418
  8. REKAWAN [Concomitant]
     Active Substance: POTASSIUM CHLORIDE
     Indication: PRODUCT USED FOR UNKNOWN INDICATION
     Route: 065
     Dates: start: 20160418
  9. TAVANIC [Concomitant]
     Active Substance: LEVOFLOXACIN
     Indication: URINARY TRACT INFECTION
     Dosage: 500 MILLIGRAM DAILY; DOSAGE TEXT; 1-0-0
     Route: 048
     Dates: start: 20160418, end: 20160420
  10. TAVEGIL [Concomitant]
     Active Substance: CLEMASTINE FUMARATE
     Indication: PROPHYLAXIS
     Dosage: 1 DOSAGE FORMS DAILY; DOSAGE TEXT: 1-0-0
     Route: 042
     Dates: start: 20160418, end: 20160420
  11. PARACETAMOL [Suspect]
     Active Substance: ACETAMINOPHEN
     Indication: PRODUCT USED FOR UNKNOWN INDICATION
     Route: 065
     Dates: start: 20160418
  12. MONO-EMBOLEX [Concomitant]
     Active Substance: CERTOPARIN SODIUM
     Indication: THROMBOSIS PROPHYLAXIS
     Route: 058
     Dates: start: 20160418
  13. MONO-EMBOLEX [Concomitant]
     Active Substance: CERTOPARIN SODIUM
     Route: 065
     Dates: start: 201604, end: 201604
  14. LEMTRADA [Suspect]
     Active Substance: ALEMTUZUMAB
     Indication: MULTIPLE SCLEROSIS
     Dosage: 12 MILLIGRAM DAILY; EXACT DAILY DOSE NOT INDICATED, ONLY UNIT DOSE?DOSAGE TEXT: 1-0-0
     Route: 041
     Dates: start: 20160418, end: 20160420
  15. LEMTRADA [Suspect]
     Active Substance: ALEMTUZUMAB
     Indication: MULTIPLE SCLEROSIS
     Route: 042
     Dates: start: 20160422
  16. VESIKUR [Concomitant]
     Active Substance: SOLIFENACIN SUCCINATE
     Indication: URGE INCONTINENCE
     Dosage: 1 DOSAGE FORMS DAILY;
     Route: 065
  17. RANITIDINE. [Concomitant]
     Active Substance: RANITIDINE
     Indication: PROPHYLAXIS
     Dosage: 1 DOSAGE FORMS DAILY; DOSAGE: 1-0-0
     Route: 042
     Dates: start: 20160418, end: 20160420
  18. CETIRIZINE [Concomitant]
     Active Substance: CETIRIZINE HYDROCHLORIDE
     Indication: PRODUCT USED FOR UNKNOWN INDICATION
     Route: 065
     Dates: start: 20160418

REACTIONS (26)
  - Acute disseminated encephalomyelitis [Unknown]
  - Cerebral hypoperfusion [Unknown]
  - Brain oedema [Unknown]
  - Hydrocephalus [Unknown]
  - Feeling hot [Unknown]
  - Nausea [Unknown]
  - Chronic fatigue syndrome [Unknown]
  - Intracranial pressure increased [Unknown]
  - Heart rate decreased [Unknown]
  - Blood pressure increased [Unknown]
  - Cerebral haemorrhage [Fatal]
  - Hypertension [Fatal]
  - Loss of consciousness [Fatal]
  - Infusion related reaction [Unknown]
  - Vasculitis necrotising [Fatal]
  - Cytokine storm [Unknown]
  - Vomiting [Unknown]
  - Organ failure [Fatal]
  - Cerebral ventricular rupture [Unknown]
  - Brain death [Unknown]
  - Cerebral haemorrhage [Fatal]
  - Mydriasis [Unknown]
  - Seizure [Unknown]
  - Blood disorder [Unknown]
  - Bradycardia [Unknown]
  - Headache [Recovered/Resolved]

NARRATIVE: CASE EVENT DATE: 201604
